FAERS Safety Report 25758473 (Version 1)
Quarter: 2025Q3

REPORT INFORMATION
  Report Type: Spontaneous
  Country: US (occurrence: US)
  Receive Date: 20250904
  Receipt Date: 20250904
  Transmission Date: 20251021
  Serious: Yes (Death)
  Sender: ABBVIE
  Company Number: US-ABBVIE-6443842

PATIENT
  Sex: Male

DRUGS (1)
  1. IMBRUVICA [Suspect]
     Active Substance: IBRUTINIB
     Indication: Intestinal ischaemia
     Route: 048

REACTIONS (2)
  - Shock [Fatal]
  - Off label use [Unknown]

NARRATIVE: CASE EVENT DATE: 20250801
